FAERS Safety Report 7802923-X (Version None)
Quarter: 2011Q4

REPORT INFORMATION
  Report Type: 
  Country: None (occurrence: None)
  Receive Date: 20111007
  Receipt Date: 20110930
  Transmission Date: 20120403
  Serious: Yes (Other)
  Sender: FDA-Public Use
  Company Number: US-ELI_LILLY_AND_COMPANY-US201110000347

PATIENT
  Sex: Female

DRUGS (1)
  1. EFFIENT [Suspect]
     Indication: AORTIC VALVE REPLACEMENT
     Dosage: 10 MG, QD
     Dates: start: 20110201, end: 20110401

REACTIONS (4)
  - LOSS OF CONSCIOUSNESS [None]
  - FATIGUE [None]
  - OFF LABEL USE [None]
  - TRANSIENT ISCHAEMIC ATTACK [None]
